FAERS Safety Report 8601866-1 (Version None)
Quarter: 2012Q3

REPORT INFORMATION
  Report Type: 
  Country: None (occurrence: None)
  Receive Date: 20120817
  Receipt Date: 20120509
  Transmission Date: 20120928
  Serious: Yes (Hospitalization)
  Sender: FDA-Public Use
  Company Number: US-BRISTOL-MYERS SQUIBB COMPANY-16581951

PATIENT
  Age: 85 Year
  Sex: Female
  Weight: 74 kg

DRUGS (2)
  1. SPRYCEL [Suspect]
     Indication: CHRONIC MYELOID LEUKAEMIA
     Dosage: 26-FEB-2012:DOSE REDUCED TO 70MG; FROM 01MAR12, INTERPT FOR 3 DAYS; RESTART FROM 08MAR12 50MG OD.
     Dates: start: 20120125
  2. ALLOPURINOL [Suspect]
     Indication: CHRONIC MYELOID LEUKAEMIA
     Dosage: 01-MAR-2012 INTERRUPTED FOR 3 DAYS AND FINALLY TAKEN OFF.
     Dates: start: 20120125, end: 20120301

REACTIONS (6)
  - HYPOPHAGIA [None]
  - VOMITING [None]
  - DIARRHOEA [None]
  - ARRHYTHMIA [None]
  - NAUSEA [None]
  - CHILLS [None]
